FAERS Safety Report 5426504-0 (Version None)
Quarter: 2007Q3

REPORT INFORMATION
  Report Type: 
  Country: None (occurrence: None)
  Receive Date: 20070731
  Receipt Date: 20070621
  Transmission Date: 20080115
  Serious: No
  Sender: FDA-Public Use
  Company Number: US200706005179

PATIENT
  Age: 69 Year
  Sex: Female
  Weight: 140.6 kg

DRUGS (2)
  1. BYETTA [Suspect]
     Indication: TYPE 2 DIABETES MELLITUS
     Dosage: 5 UG, 2/D, SUBCUTANEOUS
     Route: 058
     Dates: start: 20070605
  2. METFORMIN HCL [Concomitant]

REACTIONS (9)
  - BLOOD GLUCOSE DECREASED [None]
  - DIARRHOEA [None]
  - ENERGY INCREASED [None]
  - FEELING ABNORMAL [None]
  - HEADACHE [None]
  - LETHARGY [None]
  - NAUSEA [None]
  - TREMOR [None]
  - WEIGHT DECREASED [None]
